FAERS Safety Report 8484029-2 (Version None)
Quarter: 2012Q2

REPORT INFORMATION
  Report Type: 
  Country: None (occurrence: None)
  Receive Date: 20120402
  Receipt Date: 20110707
  Transmission Date: 20120825
  Serious: Yes (Hospitalization)
  Sender: FDA-Public Use
  Company Number: A-NJ2011-51583

PATIENT
  Age: 78 Year
  Sex: Female

DRUGS (3)
  1. OXYGEN (OXYGEN) [Concomitant]
  2. VENTAVIS [Suspect]
     Indication: PULMONARY ARTERIAL HYPERTENSION
     Dosage: , RESPIRATORY
     Route: 055
     Dates: start: 20100514
  3. TRACLEER [Suspect]
     Indication: PULMONARY ARTERIAL HYPERTENSION
     Dosage: , ORAL
     Route: 048
     Dates: start: 20100422

REACTIONS (5)
  - DYSPNOEA [None]
  - PRESYNCOPE [None]
  - ASTHENIA [None]
  - HYPOTENSION [None]
  - HYPOXIA [None]
